FAERS Safety Report 9840125 (Version 1)
Quarter: 2013Q4

REPORT INFORMATION
  Report Type: Spontaneous
  Country: US (occurrence: None)
  Receive Date: 20131211
  Receipt Date: 20131211
  Transmission Date: 20140711
  Serious: No
  Sender: FDA-Public Use
  Company Number: ALL1-2013-00775

PATIENT
  Age: 23 Year
  Sex: Female
  Weight: 63.6 kg

DRUGS (12)
  1. FIRAZYR [Suspect]
     Indication: HEREDITARY ANGIOEDEMA
     Dosage: 30 MG, AS REQ^D, SUBCUTANEOUS
     Route: 058
  2. DIPHENHYDRAMINE (DIPHENHYDRAMINE) [Concomitant]
  3. SODIUM CHLORIDE [Concomitant]
  4. EPIPEN (EPINEPHRINE) [Concomitant]
  5. CULTURELLE (LACTOBACILLUS NOS) [Concomitant]
  6. MIRENA (LEVONORGESTREL) [Concomitant]
  7. BERINERT (COMPLEMENT C1 ESTERASE INHIBITOR) [Concomitant]
  8. PARAGARD (INTRAUTERINE CONTRACEPTIVE DEVICE) [Concomitant]
  9. CITALOPRAM (CITALOPRAM) [Concomitant]
  10. RANITIDINE (RANITIDINE) [Concomitant]
  11. LORTAB /00607101/ (HYDROCODONE BITARTRATE, PARACETAMOL) [Concomitant]
  12. MULTIVITAMINS, OTHER COMBINATIONS [Concomitant]

REACTIONS (1)
  - Influenza [None]
